FAERS Safety Report 5009877-2 (Version None)
Quarter: 2006Q2

REPORT INFORMATION
  Report Type: 
  Country: None (occurrence: None)
  Receive Date: 20060522
  Receipt Date: 20060512
  Transmission Date: 20061013
  Serious: Yes (Hospitalization)
  Sender: FDA-Public Use
  Company Number: GXKR2006GB02665

PATIENT
  Sex: Female

DRUGS (6)
  1. CO-AMOXICLAV (NGX) (AMOXICILLIN, CLAVULANATE) [Suspect]
     Dates: start: 19960101, end: 19960101
  2. LAMOTRIGINE (NGX) (LAMOTRIGINE) [Suspect]
     Dosage: 150 MG ORAL
     Route: 048
  3. AMOXICILLIN [Suspect]
  4. PHENYTOIN [Suspect]
     Indication: CONVULSION
     Dosage: 9 MG
  5. PHENOXYMETHYLPENICILLIN [Suspect]
  6. AUGMENTIN '125' [Suspect]

REACTIONS (18)
  - ABNORMAL FAECES [None]
  - CANDIDIASIS [None]
  - CONSTIPATION [None]
  - CONVULSION [None]
  - DIARRHOEA [None]
  - DRUG INEFFECTIVE [None]
  - EPISTAXIS [None]
  - IMPAIRED HEALING [None]
  - INFECTION [None]
  - LACTOSE INTOLERANCE [None]
  - MALABSORPTION [None]
  - MALNUTRITION [None]
  - PHARYNGEAL OEDEMA [None]
  - RASH GENERALISED [None]
  - UPPER LIMB FRACTURE [None]
  - UPPER RESPIRATORY TRACT INFECTION [None]
  - URINARY RETENTION [None]
  - VOMITING PROJECTILE [None]
